FAERS Safety Report 13209826 (Version 1)
Quarter: 2017Q1

REPORT INFORMATION
  Report Type: Spontaneous
  Country: US (occurrence: US)
  Receive Date: 20170209
  Receipt Date: 20170209
  Transmission Date: 20170428
  Serious: Yes (Hospitalization)
  Sender: FDA-Public Use
  Company Number: None

PATIENT
  Age: 60 Year
  Sex: Male

DRUGS (8)
  1. ASPIRIN. [Concomitant]
     Active Substance: ASPIRIN
  2. METHOTREXATE. [Concomitant]
     Active Substance: METHOTREXATE
  3. SIMVASTATIN. [Concomitant]
     Active Substance: SIMVASTATIN
  4. XELJANZ [Suspect]
     Active Substance: TOFACITINIB CITRATE
     Indication: RHEUMATOID ARTHRITIS
     Dates: start: 201611, end: 201611
  5. LOSARTAN. [Concomitant]
     Active Substance: LOSARTAN
  6. PREDNISONE. [Concomitant]
     Active Substance: PREDNISONE
  7. ACTEMRA [Suspect]
     Active Substance: TOCILIZUMAB
     Indication: RHEUMATOID ARTHRITIS
     Route: 058
     Dates: start: 20150512
  8. FOLIC ACID. [Concomitant]
     Active Substance: FOLIC ACID

REACTIONS (4)
  - Pharyngeal oedema [None]
  - Lymphadenopathy [None]
  - Pancreatitis [None]
  - Gallbladder disorder [None]

NARRATIVE: CASE EVENT DATE: 201604
